FAERS Safety Report 7752514-4 (Version None)
Quarter: 2011Q3

REPORT INFORMATION
  Report Type: 
  Country: None (occurrence: None)
  Receive Date: 20110915
  Receipt Date: 20110908
  Transmission Date: 20111222
  Serious: Yes (Life-Threatening)
  Sender: FDA-Public Use
  Company Number: CN-BRACCO-000226

PATIENT
  Age: 57 Year
  Sex: Male

DRUGS (1)
  1. MULTIHANCE [Suspect]
     Indication: LIVER SCAN
     Route: 042
     Dates: start: 20110804, end: 20110804

REACTIONS (5)
  - BLOOD PRESSURE IMMEASURABLE [None]
  - FOAMING AT MOUTH [None]
  - URINARY INCONTINENCE [None]
  - VOMITING [None]
  - NAUSEA [None]
